FAERS Safety Report 25740832 (Version 1)
Quarter: 2025Q3

REPORT INFORMATION
  Report Type: Spontaneous
  Country: US (occurrence: US)
  Receive Date: 20250829
  Receipt Date: 20250829
  Transmission Date: 20251021
  Serious: No
  Sender: SANOFI AVENTIS
  Company Number: US-SA-2025SA259617

PATIENT
  Sex: Female
  Weight: 62.59 kg

DRUGS (5)
  1. DUPIXENT [Suspect]
     Active Substance: DUPILUMAB
     Dosage: 300 MG, QOW
     Route: 058
  2. PULMICORT TURBUHALER [Concomitant]
     Active Substance: BUDESONIDE
  3. SYMBICORT [Concomitant]
     Active Substance: BUDESONIDE\FORMOTEROL FUMARATE DIHYDRATE
  4. CUVITRU [Concomitant]
     Active Substance: HUMAN IMMUNOGLOBULIN G
  5. LEVOTHYROXINE SODIUM [Concomitant]
     Active Substance: LEVOTHYROXINE SODIUM

REACTIONS (2)
  - Chronic sinusitis [Not Recovered/Not Resolved]
  - Injection site pain [Not Recovered/Not Resolved]
